FAERS Safety Report 8473495-4 (Version None)
Quarter: 2012Q2

REPORT INFORMATION
  Report Type: 
  Country: None (occurrence: None)
  Receive Date: 20120622
  Receipt Date: 20120622
  Transmission Date: 20120825
  Serious: Yes (Hospitalization)
  Sender: FDA-Public Use
  Company Number: None

PATIENT
  Sex: Male
  Weight: 89.8122 kg

DRUGS (7)
  1. REVLIMID [Suspect]
     Indication: LYMPHOCYTIC LYMPHOMA
     Dosage: 10 ONCE DAILY PO
     Route: 048
     Dates: start: 20120606, end: 20120620
  2. REVLIMID [Suspect]
     Indication: CHRONIC LYMPHOCYTIC LEUKAEMIA
     Dosage: 10 ONCE DAILY PO
     Route: 048
     Dates: start: 20120606, end: 20120620
  3. ASPIRIN [Concomitant]
  4. SENNA-MINT WAF [Concomitant]
  5. VANCOMYCIN [Concomitant]
  6. ONDANSETRON [Concomitant]
  7. DOCUSATE [Concomitant]

REACTIONS (7)
  - DECREASED APPETITE [None]
  - RASH [None]
  - BACTERAEMIA [None]
  - CHILLS [None]
  - PYREXIA [None]
  - FATIGUE [None]
  - SECRETION DISCHARGE [None]
